FAERS Safety Report 21329561 (Version 1)
Quarter: 2022Q3

REPORT INFORMATION
  Report Type: Other
  Country: US (occurrence: US)
  Receive Date: 20220913
  Receipt Date: 20220913
  Transmission Date: 20221027
  Serious: No
  Sender: FDA-Public Use
  Company Number: US-LEADIANT BIOSCIENCES INC-2022STPI000055

PATIENT
  Sex: Male

DRUGS (4)
  1. MATULANE [Suspect]
     Active Substance: PROCARBAZINE HYDROCHLORIDE
     Indication: Brain neoplasm malignant
     Dosage: 100 MILLIGRAM, 2 CAPSULES MONDAY TO THURSDAY
     Dates: start: 20211103
  2. MATULANE [Suspect]
     Active Substance: PROCARBAZINE HYDROCHLORIDE
     Dosage: 150 MILLIGRAM, 3 CAPSULES ON FRIDAY TO SATURDAY FOR DAYS 8 TO 21
     Dates: start: 20211103
  3. LOMUSTINE [Concomitant]
     Active Substance: LOMUSTINE
  4. VINCRISTINE [Concomitant]
     Active Substance: VINCRISTINE

REACTIONS (4)
  - Neuropathy peripheral [Unknown]
  - Constipation [Unknown]
  - Nausea [Unknown]
  - Vomiting [Unknown]
